FAERS Safety Report 4421648-4 (Version None)
Quarter: 2004Q3

REPORT INFORMATION
  Report Type: 
  Country: None (occurrence: None)
  Receive Date: 20040803
  Receipt Date: 20040719
  Transmission Date: 20050211
  Serious: Yes (Hospitalization, Disabling)
  Sender: FDA-Public Use
  Company Number: 237132

PATIENT
  Age: 73 Year
  Sex: Male
  Weight: 70 kg

DRUGS (8)
  1. NOVOSEVEN [Suspect]
     Indication: FACTOR XI DEFICIENCY
     Dates: start: 20040327, end: 20040401
  2. NOVOSEVEN [Suspect]
  3. NOVOSEVEN [Suspect]
  4. NOVOSEVEN [Suspect]
  5. NOVOSEVEN [Suspect]
  6. LISINOPRIL [Concomitant]
  7. ALLOPURINOL [Concomitant]
  8. OMEPRAZOLE [Concomitant]

REACTIONS (1)
  - THROMBOTIC STROKE [None]
